FAERS Safety Report 18038631 (Version 1)
Quarter: 2020Q3

REPORT INFORMATION
  Report Type: Spontaneous
  Country: JP (occurrence: JP)
  Receive Date: 20200717
  Receipt Date: 20200717
  Transmission Date: 20201103
  Serious: Yes (Other)
  Sender: FDA-Public Use
  Company Number: JP-MYLANLABS-2020M1064776

PATIENT
  Age: 70 Year
  Sex: Male

DRUGS (5)
  1. RITUXIMAB. [Suspect]
     Active Substance: RITUXIMAB
     Indication: ADRENAL GLAND CANCER
     Dosage: R?CHOP CHEMOTHERAPY; 2 CYCLES
     Route: 065
  2. VINCRISTINE [Suspect]
     Active Substance: VINCRISTINE
     Indication: ADRENAL GLAND CANCER
     Dosage: R?CHOP CHEMOTHERAPY; 1 CYCLE
     Route: 065
  3. DOXORUBICIN [Suspect]
     Active Substance: DOXORUBICIN
     Indication: ADRENAL GLAND CANCER
     Dosage: R?CHOP CHEMOTHERAPY; 1 CYCLE
     Route: 065
  4. CYCLOPHOSPHAMIDE. [Suspect]
     Active Substance: CYCLOPHOSPHAMIDE
     Indication: ADRENAL GLAND CANCER
     Dosage: R?CHOP CHEMOTHERAPY; 1 CYCLE
     Route: 065
  5. PREDNISOLONE. [Suspect]
     Active Substance: PREDNISOLONE
     Indication: ADRENAL GLAND CANCER
     Dosage: R?CHOP CHEMOTHERAPY; 1 CYCLE
     Route: 065

REACTIONS (4)
  - Cardiac failure congestive [Unknown]
  - Splenic haemorrhage [Recovering/Resolving]
  - Disseminated intravascular coagulation [Unknown]
  - Tumour lysis syndrome [Unknown]
